FAERS Safety Report 16275400 (Version 3)
Quarter: 2021Q1

REPORT INFORMATION
  Report Type: Spontaneous
  Country: VE (occurrence: VE)
  Receive Date: 20190504
  Receipt Date: 20210210
  Transmission Date: 20210419
  Serious: Yes (Other)
  Sender: FDA-Public Use
  Company Number: PHHY2019VE099741

PATIENT
  Sex: Male

DRUGS (1)
  1. GLIVEC [Suspect]
     Active Substance: IMATINIB MESYLATE
     Indication: CHRONIC MYELOID LEUKAEMIA
     Dosage: 400 MG, (4 TABLETS OF 100 MG)
     Route: 065

REACTIONS (15)
  - Pyrexia [Unknown]
  - Nausea [Unknown]
  - Discharge [Unknown]
  - Blood urine present [Unknown]
  - Micturition disorder [Unknown]
  - Feeling abnormal [Unknown]
  - Dyspepsia [Unknown]
  - Urinary tract infection [Unknown]
  - Renal disorder [Unknown]
  - Ocular discomfort [Unknown]
  - Bone pain [Unknown]
  - Scab [Unknown]
  - Pain [Unknown]
  - Eye irritation [Unknown]
  - Malaise [Unknown]
